FAERS Safety Report 17818820 (Version 1)
Quarter: 2020Q2

REPORT INFORMATION
  Report Type: Spontaneous
  Country: FR (occurrence: FR)
  Receive Date: 20200522
  Receipt Date: 20200522
  Transmission Date: 20200714
  Serious: Yes (Other)
  Sender: FDA-Public Use
  Company Number: FR-ROCHE-2603274

PATIENT
  Age: 56 Year
  Sex: Male
  Weight: 115 kg

DRUGS (6)
  1. ADENURIC [Concomitant]
     Active Substance: FEBUXOSTAT
  2. COTELLIC [Suspect]
     Active Substance: COBIMETINIB
     Indication: MALIGNANT MELANOMA STAGE IV
     Route: 048
     Dates: start: 20180809, end: 20180831
  3. DIFFU K [Concomitant]
     Active Substance: POTASSIUM CHLORIDE
     Route: 065
  4. ZELBORAF [Suspect]
     Active Substance: VEMURAFENIB
     Indication: MALIGNANT MELANOMA STAGE IV
     Route: 048
     Dates: start: 20180809, end: 20180831
  5. PERINDOPRIL [Concomitant]
     Active Substance: PERINDOPRIL
  6. CORTANCYL [Concomitant]
     Active Substance: PREDNISONE

REACTIONS (4)
  - Toxic skin eruption [Recovered/Resolved]
  - Face oedema [Recovered/Resolved]
  - Rash maculo-papular [Recovered/Resolved]
  - Acute kidney injury [Recovered/Resolved]

NARRATIVE: CASE EVENT DATE: 20180830
